FAERS Safety Report 8178907-1 (Version None)
Quarter: 2012Q1

REPORT INFORMATION
  Report Type: 
  Country: None (occurrence: None)
  Receive Date: 20120302
  Receipt Date: 20120222
  Transmission Date: 20120608
  Serious: Yes (Other)
  Sender: FDA-Public Use
  Company Number: US-BIOGENIDEC-2010BI035543

PATIENT
  Age: 46 Year
  Sex: Female

DRUGS (3)
  1. TYSABRI [Suspect]
     Indication: MULTIPLE SCLEROSIS
     Route: 042
     Dates: start: 20100629, end: 20120118
  2. LEXAPRO [Concomitant]
     Indication: ANXIETY
     Dates: start: 20100101
  3. LEXAPRO [Concomitant]
     Dates: start: 20100101

REACTIONS (11)
  - MUSCULOSKELETAL STIFFNESS [None]
  - FATIGUE [None]
  - LARYNGITIS [None]
  - MOBILITY DECREASED [None]
  - BALANCE DISORDER [None]
  - PERONEAL NERVE PALSY [None]
  - FALL [None]
  - ANXIETY [None]
  - MUSCLE SPASMS [None]
  - SOMNOLENCE [None]
  - SENSATION OF HEAVINESS [None]
